FAERS Safety Report 4345410-6 (Version None)
Quarter: 2004Q2

REPORT INFORMATION
  Report Type: 
  Country: None (occurrence: None)
  Receive Date: 20040423
  Receipt Date: 20040408
  Transmission Date: 20050107
  Serious: No
  Sender: FDA-Public Use
  Company Number: 04H-167-0257350

PATIENT
  Age: 16 Year
  Sex: Female

DRUGS (8)
  1. MEPERIDINE HCL [Suspect]
     Indication: ANAESTHESIA
     Dosage: SEE IMAGE
     Route: 042
  2. MEPERIDINE HCL [Suspect]
     Indication: ANALGESIC EFFECT
     Dosage: SEE IMAGE
     Route: 042
  3. MIDAZOLAM HCL [Concomitant]
  4. METOCLOPRAMIDE [Concomitant]
  5. GLUCOSE [Concomitant]
  6. OXYGEN [Concomitant]
  7. PROPOFOL [Concomitant]
  8. NITROUS OXIDE [Concomitant]

REACTIONS (8)
  - ERYTHEMA [None]
  - INFUSION RELATED REACTION [None]
  - JOINT STIFFNESS [None]
  - MEDICATION ERROR [None]
  - OEDEMA PERIPHERAL [None]
  - PAIN IN EXTREMITY [None]
  - POST PROCEDURAL COMPLICATION [None]
  - SKIN DISCOLOURATION [None]
